FAERS Safety Report 6316985-2 (Version None)
Quarter: 2009Q3

REPORT INFORMATION
  Report Type: 
  Country: None (occurrence: None)
  Receive Date: 20090820
  Receipt Date: 20090812
  Transmission Date: 20100115
  Serious: Yes (Life-Threatening, Hospitalization, Other)
  Sender: FDA-Public Use
  Company Number: DE-BAXTER-2009BH012780

PATIENT
  Age: 80 Year
  Sex: Female
  Weight: 70 kg

DRUGS (2)
  1. ENDOXAN BAXTER [Suspect]
     Indication: MICROSCOPIC POLYANGIITIS
     Dosage: 1X 880 MG I.V ON 08 AND 29 MAY 2009
     Route: 042
     Dates: start: 20090508
  2. ENDOXAN BAXTER [Suspect]
     Route: 042
     Dates: start: 20090529

REACTIONS (3)
  - AGRANULOCYTOSIS [None]
  - FEBRILE NEUTROPENIA [None]
  - SEPTIC SHOCK [None]
